FAERS Safety Report 18552020 (Version 1)
Quarter: 2020Q4

REPORT INFORMATION
  Report Type: Spontaneous
  Country: CN (occurrence: CN)
  Receive Date: 20201126
  Receipt Date: 20201126
  Transmission Date: 20210114
  Serious: Yes (Hospitalization)
  Sender: FDA-Public Use
  Company Number: CN-ROCHE-2721219

PATIENT
  Age: 69 Year
  Sex: Male

DRUGS (15)
  1. RALTITREXED [Concomitant]
     Active Substance: RALTITREXED
     Indication: GASTRIC CANCER
     Dates: start: 2016, end: 201705
  2. XELODA [Suspect]
     Active Substance: CAPECITABINE
     Route: 048
     Dates: start: 201409, end: 201505
  3. PACLITAXEL. [Concomitant]
     Active Substance: PACLITAXEL
     Indication: GASTRIC CANCER
     Dates: start: 201409, end: 201505
  4. DOCETAXEL. [Concomitant]
     Active Substance: DOCETAXEL
     Indication: GASTRIC CANCER
     Dates: start: 20170525, end: 20180516
  5. HERCEPTIN [Suspect]
     Active Substance: TRASTUZUMAB
     Route: 041
     Dates: start: 201409, end: 201505
  6. XELODA [Suspect]
     Active Substance: CAPECITABINE
     Route: 048
     Dates: start: 20170525, end: 20180516
  7. CIS-PLATINUM [Concomitant]
     Active Substance: CISPLATIN
     Indication: GASTRIC CANCER
     Dates: start: 2016, end: 201705
  8. XELODA [Suspect]
     Active Substance: CAPECITABINE
     Indication: GASTRIC CANCER
     Route: 048
     Dates: start: 2013, end: 2013
  9. HERCEPTIN [Suspect]
     Active Substance: TRASTUZUMAB
     Route: 041
     Dates: start: 20170525, end: 20180516
  10. HERCEPTIN [Suspect]
     Active Substance: TRASTUZUMAB
     Route: 041
     Dates: start: 201808, end: 201908
  11. ADRIAMYCIN [Concomitant]
     Active Substance: DOXORUBICIN HYDROCHLORIDE
     Indication: GASTRIC CANCER
     Dates: start: 2016, end: 201705
  12. HERCEPTIN [Suspect]
     Active Substance: TRASTUZUMAB
     Indication: GASTRIC CANCER
     Route: 041
     Dates: start: 20130720, end: 20140507
  13. HERCEPTIN [Suspect]
     Active Substance: TRASTUZUMAB
     Route: 041
     Dates: start: 20190919
  14. APATINIB [Concomitant]
     Active Substance: APATINIB
     Indication: GASTRIC CANCER
     Dates: start: 201512
  15. PACLITAXEL. [Concomitant]
     Active Substance: PACLITAXEL
     Dates: start: 2016, end: 201705

REACTIONS (1)
  - Cerebral haemorrhage [Recovered/Resolved]

NARRATIVE: CASE EVENT DATE: 201512
